FAERS Safety Report 6127639-X (Version None)
Quarter: 2009Q1

REPORT INFORMATION
  Report Type: 
  Country: None (occurrence: None)
  Receive Date: 20090323
  Receipt Date: 20090317
  Transmission Date: 20090719
  Serious: Yes (Other)
  Sender: FDA-Public Use
  Company Number: US-BAYER-200910608NA

PATIENT
  Age: 36 Year
  Sex: Female
  Weight: 74 kg

DRUGS (2)
  1. MIRENA [Suspect]
     Indication: CONTRACEPTION
     Dosage: CONTINUOUS
     Route: 015
     Dates: start: 20041011, end: 20081125
  2. MULTI-VITAMIN [Concomitant]

REACTIONS (3)
  - ECTOPIC PREGNANCY WITH INTRAUTERINE DEVICE [None]
  - PREGNANCY TEST URINE POSITIVE [None]
  - VAGINAL HAEMORRHAGE [None]
